FAERS Safety Report 4509847-4 (Version None)
Quarter: 2004Q4

REPORT INFORMATION
  Report Type: 
  Country: None (occurrence: None)
  Receive Date: 20041119
  Receipt Date: 20040813
  Transmission Date: 20050328
  Serious: Yes (Hospitalization)
  Sender: FDA-Public Use
  Company Number: 2004055789

PATIENT
  Sex: Male

DRUGS (1)
  1. UNISOM [Suspect]
     Indication: INSOMNIA
     Dosage: ORAL
     Route: 048

REACTIONS (2)
  - ACCIDENT [None]
  - DRUG SCREEN POSITIVE [None]
